FAERS Safety Report 16277394 (Version 1)
Quarter: 2019Q2

REPORT INFORMATION
  Report Type: Spontaneous
  Country: US (occurrence: US)
  Receive Date: 20190506
  Receipt Date: 20190506
  Transmission Date: 20190711
  Serious: No
  Sender: FDA-Public Use
  Company Number: US-MYLANLABS-2019M1041809

PATIENT
  Sex: Female

DRUGS (1)
  1. WIXELA INHUB [Suspect]
     Active Substance: FLUTICASONE PROPIONATE\SALMETEROL XINAFOATE
     Indication: PRODUCT USED FOR UNKNOWN INDICATION
     Dosage: UNK
     Route: 055

REACTIONS (6)
  - Dyspnoea [Recovered/Resolved]
  - Asthenia [Recovered/Resolved]
  - Nervousness [Recovered/Resolved]
  - Throat irritation [Recovered/Resolved]
  - Dysphonia [Recovered/Resolved]
  - Fatigue [Recovered/Resolved]
